FAERS Safety Report 9787463 (Version 2)
Quarter: 2014Q1

REPORT INFORMATION
  Report Type: Not Available
  Country: GB (occurrence: GB)
  Receive Date: 20131230
  Receipt Date: 20140114
  Transmission Date: 20141002
  Serious: Yes (Other)
  Sender: FDA-Public Use
  Company Number: GB-BEH-2013039666

PATIENT
  Age: 69 Year
  Sex: Female

DRUGS (3)
  1. PRIVIGEN [Suspect]
     Indication: ANTIBODY TEST ABNORMAL
     Route: 042
  2. FLEBOGAMMADIF [Suspect]
     Indication: ANTIBODY TEST ABNORMAL
     Dosage: START AND STOP DATE: AUG 2013
     Route: 042
  3. SUBGAM [Suspect]
     Indication: ANTIBODY TEST ABNORMAL
     Route: 058
     Dates: start: 20131128, end: 20131128

REACTIONS (4)
  - Vasculitis [Recovered/Resolved]
  - Erythema [Recovered/Resolved]
  - Rash [Recovered/Resolved]
  - Local swelling [Recovered/Resolved]
